FAERS Safety Report 6749741-1 (Version None)
Quarter: 2010Q2

REPORT INFORMATION
  Report Type: 
  Country: None (occurrence: None)
  Receive Date: 20100601
  Receipt Date: 20100521
  Transmission Date: 20101027
  Serious: Yes (Hospitalization)
  Sender: FDA-Public Use
  Company Number: ES-SANOFI-AVENTIS-2010SA029835

PATIENT
  Age: 85 Year
  Sex: Female

DRUGS (5)
  1. SEGURIL [Suspect]
     Indication: HYPERTENSION
     Route: 048
     Dates: start: 20100101, end: 20100303
  2. ENALAPRIL [Interacting]
     Indication: HYPERTENSION
     Route: 048
     Dates: start: 20100101
  3. ALDACTONE [Interacting]
     Indication: HYPERTENSION
     Route: 048
     Dates: start: 20100101, end: 20100303
  4. ADIRO [Concomitant]
     Indication: PROPHYLAXIS
     Route: 048
  5. ZALDIAR [Concomitant]
     Dosage: 3 DF DAILY DOSE:3 UNIT(S)
     Route: 048

REACTIONS (4)
  - DRUG INTERACTION [None]
  - HYPERKALAEMIA [None]
  - HYPONATRAEMIA [None]
  - SOMNOLENCE [None]
